FAERS Safety Report 7341580-6 (Version None)
Quarter: 2011Q1

REPORT INFORMATION
  Report Type: 
  Country: None (occurrence: None)
  Receive Date: 20110309
  Receipt Date: 20110304
  Transmission Date: 20110831
  Serious: Yes (Other)
  Sender: FDA-Public Use
  Company Number: US-PFIZER INC-2010137969

PATIENT
  Sex: Male

DRUGS (4)
  1. DEPAKOTE [Concomitant]
     Indication: BIPOLAR DISORDER
     Dosage: UNK
     Dates: start: 20040101
  2. CHANTIX [Suspect]
     Indication: SMOKING CESSATION THERAPY
     Dosage: UNK
     Dates: start: 20080101, end: 20090101
  3. SEROQUEL [Concomitant]
     Indication: ANXIETY
  4. SEROQUEL [Concomitant]
     Indication: SLEEP DISORDER
     Dosage: UNK

REACTIONS (7)
  - INTENTIONAL OVERDOSE [None]
  - LOSS OF CONSCIOUSNESS [None]
  - FOOT FRACTURE [None]
  - SUICIDE ATTEMPT [None]
  - DEPRESSION [None]
  - MENTAL DISORDER [None]
  - ANXIETY [None]
